FAERS Safety Report 4901414-3 (Version None)
Quarter: 2006Q1

REPORT INFORMATION
  Report Type: 
  Country: None (occurrence: None)
  Receive Date: 20060201
  Receipt Date: 20060201
  Transmission Date: 20060701
  Serious: Yes (Other)
  Sender: FDA-Public Use
  Company Number: None

PATIENT
  Age: 20 Year
  Sex: Female
  Weight: 56.6996 kg

DRUGS (1)
  1. DILAUDID [Suspect]
     Indication: ABDOMINAL PAIN
     Dosage: 2 MG IVP
     Route: 042

REACTIONS (2)
  - FLUSHING [None]
  - PRURITUS [None]
